FAERS Safety Report 4520345-4 (Version None)
Quarter: 2004Q4

REPORT INFORMATION
  Report Type: 
  Country: None (occurrence: None)
  Receive Date: 20041207
  Receipt Date: 20041123
  Transmission Date: 20050328
  Serious: Yes (Hospitalization)
  Sender: FDA-Public Use
  Company Number: AT-GLAXOSMITHKLINE-B0358760A

PATIENT
  Sex: Male

DRUGS (3)
  1. AVANDIA [Suspect]
     Indication: DIABETES MELLITUS
     Route: 048
  2. FENOFIBRATE [Suspect]
     Route: 065
  3. METFORMIN HCL [Suspect]
     Route: 065

REACTIONS (1)
  - RHABDOMYOLYSIS [None]
